FAERS Safety Report 10411300 (Version 2)
Quarter: 2015Q4

REPORT INFORMATION
  Report Type: Spontaneous
  Country: ES (occurrence: ES)
  Receive Date: 20140826
  Receipt Date: 20151221
  Transmission Date: 20160304
  Serious: Yes (Other)
  Sender: FDA-Public Use
  Company Number: ES-MYLAN-2014M1002458

PATIENT

DRUGS (3)
  1. FLUTICASONE PROPIONATE W/SALMETEROL [Concomitant]
     Active Substance: FLUTICASONE PROPIONATE\SALMETEROL XINAFOATE
     Indication: CHRONIC OBSTRUCTIVE PULMONARY DISEASE
     Route: 065
  2. SALBUTAMOL [Suspect]
     Active Substance: ALBUTEROL
     Indication: CHRONIC OBSTRUCTIVE PULMONARY DISEASE
     Dosage: 200 ?G, ONCE
     Route: 055
  3. TERBUTALINE [Suspect]
     Active Substance: TERBUTALINE
     Indication: CHRONIC OBSTRUCTIVE PULMONARY DISEASE
     Dosage: 500 ?G, UNK
     Route: 055

REACTIONS (2)
  - Bronchospasm [Recovered/Resolved]
  - Anaphylactic reaction [Recovered/Resolved]
